FAERS Safety Report 22057042 (Version 1)
Quarter: 2023Q1

REPORT INFORMATION
  Report Type: Spontaneous
  Country: US (occurrence: US)
  Receive Date: 20230303
  Receipt Date: 20230303
  Transmission Date: 20230417
  Serious: No
  Sender: FDA-Public Use
  Company Number: US-002147023-NVSC2023US046716

PATIENT

DRUGS (1)
  1. COSENTYX [Suspect]
     Active Substance: SECUKINUMAB
     Indication: Hidradenitis
     Dosage: UNK (FOR SEVERAL MONTHS)
     Route: 065

REACTIONS (4)
  - Dizziness [Unknown]
  - Malaise [Unknown]
  - Urticaria [Unknown]
  - Therapeutic product effect decreased [Unknown]
